FAERS Safety Report 18747548 (Version 1)
Quarter: 2021Q1

REPORT INFORMATION
  Report Type: Spontaneous
  Country: US (occurrence: US)
  Receive Date: 20210115
  Receipt Date: 20210115
  Transmission Date: 20210419
  Serious: Yes (Other)
  Sender: FDA-Public Use
  Company Number: US-EMD SERONO-9198969

PATIENT
  Age: 34 Year
  Sex: Female
  Weight: 72 kg

DRUGS (1)
  1. GONAL?F [Suspect]
     Active Substance: FOLLITROPIN
     Indication: PRODUCT USED FOR UNKNOWN INDICATION
     Dosage: PRE FILLED PEN

REACTIONS (6)
  - Dysmenorrhoea [Not Recovered/Not Resolved]
  - Constipation [Unknown]
  - Incorrect dose administered by device [Unknown]
  - Pyrexia [Unknown]
  - Device issue [Unknown]
  - Ovarian hyperstimulation syndrome [Recovering/Resolving]
